FAERS Safety Report 21228908 (Version 1)
Quarter: 2022Q3

REPORT INFORMATION
  Report Type: Spontaneous
  Country: CA (occurrence: None)
  Receive Date: 20220818
  Receipt Date: 20220818
  Transmission Date: 20221027
  Serious: Yes (Hospitalization, Other)
  Sender: FDA-Public Use
  Company Number: 2020SF30389

PATIENT
  Age: 43 Year
  Sex: Female

DRUGS (16)
  1. SYMBICORT [Suspect]
     Active Substance: BUDESONIDE\FORMOTEROL FUMARATE DIHYDRATE
     Indication: Product used for unknown indication
     Dosage: 2.0 DOSAGE FORMS, 2 PUFFS, TWO TIMES A DAY
     Route: 055
  2. SYMBICORT [Suspect]
     Active Substance: BUDESONIDE\FORMOTEROL FUMARATE DIHYDRATE
     Indication: Product used for unknown indication
     Dosage: UNKNOWN
     Route: 055
  3. BREO ELLIPTA [Suspect]
     Active Substance: FLUTICASONE FUROATE\VILANTEROL TRIFENATATE
     Indication: Product used for unknown indication
     Route: 055
     Dates: start: 201901
  4. COMBIVENT [Suspect]
     Active Substance: ALBUTEROL SULFATE\IPRATROPIUM BROMIDE
     Indication: Product used for unknown indication
     Dosage: UNKNOWN
     Route: 065
  5. OLODATEROL\TIOTROPIUM [Suspect]
     Active Substance: OLODATEROL\TIOTROPIUM
     Indication: Product used for unknown indication
     Dosage: UNKNOWN
     Route: 065
  6. QVAR [Suspect]
     Active Substance: BECLOMETHASONE DIPROPIONATE
     Indication: Product used for unknown indication
     Dosage: UNKNOWN
     Route: 065
  7. ALBUTEROL SULFATE [Suspect]
     Active Substance: ALBUTEROL SULFATE
     Indication: Product used for unknown indication
     Dosage: UNKNOWN
     Route: 065
     Dates: start: 2014
  8. SINGULAIR [Suspect]
     Active Substance: MONTELUKAST SODIUM
     Indication: Product used for unknown indication
     Route: 065
  9. ZENHALE [Suspect]
     Active Substance: FORMOTEROL FUMARATE\MOMETASONE FUROATE
     Indication: Product used for unknown indication
     Route: 055
  10. ALBUTEROL SULFATE\IPRATROPIUM BROMIDE [Suspect]
     Active Substance: ALBUTEROL SULFATE\IPRATROPIUM BROMIDE
     Indication: Product used for unknown indication
     Dosage: UNKNOWN
     Route: 065
  11. FORMOTEROL FUMARATE\MOMETASONE FUROATE [Suspect]
     Active Substance: FORMOTEROL FUMARATE\MOMETASONE FUROATE
     Indication: Product used for unknown indication
     Dosage: UNKNOWN
     Route: 055
  12. FORMOTEROL\MOMETASONE [Suspect]
     Active Substance: FORMOTEROL\MOMETASONE
     Indication: Product used for unknown indication
     Dosage: UNKNOWN
     Route: 055
  13. OLODATEROL HYDROCHLORIDE [Suspect]
     Active Substance: OLODATEROL HYDROCHLORIDE
     Indication: Product used for unknown indication
     Dosage: UNKNOWN
     Route: 065
  14. NUCALA [Concomitant]
     Active Substance: MEPOLIZUMAB
     Indication: Asthma
     Route: 042
     Dates: start: 20190205
  15. REACTINE [Concomitant]
     Indication: Product used for unknown indication
     Route: 065
  16. CETIRIZINE [Concomitant]
     Active Substance: CETIRIZINE HYDROCHLORIDE
     Indication: Product used for unknown indication
     Route: 065

REACTIONS (16)
  - Asthma [Recovering/Resolving]
  - Lower respiratory tract infection [Recovering/Resolving]
  - Adverse drug reaction [Recovering/Resolving]
  - Sputum abnormal [Recovering/Resolving]
  - Obstructive airways disorder [Recovering/Resolving]
  - Eosinophil count increased [Recovering/Resolving]
  - Respiratory tract inflammation [Recovering/Resolving]
  - Neutrophil count increased [Recovering/Resolving]
  - Bronchitis [Recovering/Resolving]
  - Full blood count abnormal [Recovering/Resolving]
  - Sputum discoloured [Recovering/Resolving]
  - Seasonal allergy [Recovering/Resolving]
  - Dysphonia [Recovering/Resolving]
  - Pruritus [Recovering/Resolving]
  - Cough [Recovering/Resolving]
  - Drug ineffective [Unknown]

NARRATIVE: CASE EVENT DATE: 20170822
